FAERS Safety Report 4778112-2 (Version None)
Quarter: 2005Q3

REPORT INFORMATION
  Report Type: 
  Country: None (occurrence: None)
  Receive Date: 20050922
  Receipt Date: 20050906
  Transmission Date: 20060218
  Serious: Yes (Death, Hospitalization)
  Sender: FDA-Public Use
  Company Number: FACT0500453

PATIENT
  Age: 33 Year
  Sex: Male

DRUGS (7)
  1. FACTIVE [Suspect]
     Indication: RESPIRATORY TRACT INFECTION BACTERIAL
     Dosage: 320 MG
  2. TYLENOL [Suspect]
     Indication: PYREXIA
     Dosage: 4 G, QD, ORAL
     Route: 048
  3. LEVAQUIN [Suspect]
     Indication: SINUSITIS
     Dates: start: 20050606, end: 20050608
  4. DOXYCYCLINE [Suspect]
     Dates: start: 20050608
  5. IMODIUM [Concomitant]
  6. TUMS (CALCIUM CARBONATE0 [Concomitant]
  7. ZYRTEC [Concomitant]

REACTIONS (85)
  - ABDOMINAL DISTENSION [None]
  - ABDOMINAL PAIN [None]
  - ABDOMINAL PAIN UPPER [None]
  - ABSCESS INTESTINAL [None]
  - AMMONIA INCREASED [None]
  - ANAEMIA [None]
  - ANISOCYTOSIS [None]
  - ANTI-HBC IGM ANTIBODY POSITIVE [None]
  - ASTERIXIS [None]
  - BLISTER [None]
  - BLOOD ALBUMIN DECREASED [None]
  - BLOOD CALCIUM DECREASED [None]
  - BLOOD CHLORIDE DECREASED [None]
  - BLOOD LACTATE DEHYDROGENASE INCREASED [None]
  - BLOOD PRESSURE SYSTOLIC INCREASED [None]
  - BLOOD SODIUM DECREASED [None]
  - BONE MARROW DISORDER [None]
  - CARDIAC MURMUR [None]
  - CARDIO-RESPIRATORY ARREST [None]
  - CARDIOMEGALY [None]
  - CHILLS [None]
  - CHOLELITHIASIS [None]
  - CHOLESTASIS [None]
  - CREPITATIONS [None]
  - DERMATITIS [None]
  - DIARRHOEA [None]
  - DRUG TOXICITY [None]
  - DYSPNOEA [None]
  - DYSTROPHIC CALCIFICATION [None]
  - EPSTEIN-BARR VIRUS ANTIBODY POSITIVE [None]
  - ERYTHROPHAGOCYTOSIS [None]
  - HAEMODIALYSIS [None]
  - HAEMODYNAMIC INSTABILITY [None]
  - HEART RATE INCREASED [None]
  - HEPATIC FAILURE [None]
  - HEPATITIS INFECTIOUS [None]
  - HEPATOMEGALY [None]
  - HISTIOCYTOSIS HAEMATOPHAGIC [None]
  - HUMAN HERPES VIRUS 6 SEROLOGY POSITIVE [None]
  - HYPERHIDROSIS [None]
  - HYPERKALAEMIA [None]
  - HYPOTENSION [None]
  - INFECTION [None]
  - JAUNDICE [None]
  - KIDNEY ENLARGEMENT [None]
  - LACERATION [None]
  - LETHARGY [None]
  - LEUKOCYTOSIS [None]
  - LUNG DISORDER [None]
  - LYMPHOMA [None]
  - LYMPHOPENIA [None]
  - MALAISE [None]
  - MULTI-ORGAN DISORDER [None]
  - MYALGIA [None]
  - MYOCARDITIS [None]
  - NAUSEA [None]
  - NECROSIS [None]
  - NEPHRITIS INTERSTITIAL [None]
  - NERVOUS SYSTEM DISORDER [None]
  - OBSTRUCTION [None]
  - OCULAR ICTERUS [None]
  - OEDEMA PERIPHERAL [None]
  - PANCREATITIS [None]
  - PITTING OEDEMA [None]
  - PROTEIN TOTAL DECREASED [None]
  - PULMONARY ALVEOLAR HAEMORRHAGE [None]
  - PULMONARY OEDEMA [None]
  - PYREXIA [None]
  - RALES [None]
  - RASH [None]
  - RASH GENERALISED [None]
  - RENAL FAILURE [None]
  - RENAL ISCHAEMIA [None]
  - RESPIRATORY RATE INCREASED [None]
  - RHABDOMYOLYSIS [None]
  - SERUM FERRITIN INCREASED [None]
  - SINUSITIS [None]
  - SPLENOMEGALY [None]
  - SPLENOSIS [None]
  - TACHYCARDIA [None]
  - TACHYPNOEA [None]
  - THROMBOCYTOPENIA [None]
  - TONGUE DISCOLOURATION [None]
  - VENTRICULAR HYPERTROPHY [None]
  - VOMITING [None]
